FAERS Safety Report 21599523 (Version 1)
Quarter: 2022Q4

REPORT INFORMATION
  Report Type: Spontaneous
  Country: US (occurrence: None)
  Receive Date: 20221115
  Receipt Date: 20221115
  Transmission Date: 20230113
  Serious: No
  Sender: FDA-Public Use
  Company Number: 2022A356145

PATIENT
  Sex: Male

DRUGS (2)
  1. CALQUENCE [Suspect]
     Active Substance: ACALABRUTINIB
     Indication: Chronic lymphocytic leukaemia
     Route: 048
     Dates: start: 20220616, end: 20221002
  2. GAZYVA [Concomitant]
     Active Substance: OBINUTUZUMAB
     Route: 042

REACTIONS (10)
  - Lymphadenopathy [Unknown]
  - White blood cell count increased [Unknown]
  - Neutrophil count increased [Unknown]
  - Fatigue [Unknown]
  - Night sweats [Unknown]
  - Headache [Unknown]
  - Nausea [Unknown]
  - Diverticulitis [Recovered/Resolved]
  - Condition aggravated [Not Recovered/Not Resolved]
  - Drug ineffective [Not Recovered/Not Resolved]
